FAERS Safety Report 10347670 (Version 1)
Quarter: 2014Q3

REPORT INFORMATION
  Report Type: Report from Study
  Country: US (occurrence: US)
  Receive Date: 20140729
  Receipt Date: 20140729
  Transmission Date: 20150326
  Serious: Yes (Other)
  Sender: FDA-Public Use
  Company Number: US-ROXANE LABORATORIES, INC.-2014-BI-34008GD

PATIENT
  Age: 65 Year
  Sex: Male

DRUGS (5)
  1. METHOTREXATE [Suspect]
     Active Substance: METHOTREXATE
     Indication: VOGT-KOYANAGI-HARADA SYNDROME
     Route: 065
  2. PREDNISONE. [Suspect]
     Active Substance: PREDNISONE
     Indication: VOGT-KOYANAGI-HARADA SYNDROME
     Route: 065
  3. TRIAMCINOLONE ACETONIDE. [Suspect]
     Active Substance: TRIAMCINOLONE ACETONIDE
     Indication: CATARACT
     Route: 050
  4. TRIAMCINOLONE ACETONIDE. [Suspect]
     Active Substance: TRIAMCINOLONE ACETONIDE
     Dosage: 4 MG
     Route: 031
  5. INFLIXIMAB [Suspect]
     Active Substance: INFLIXIMAB
     Indication: VOGT-KOYANAGI-HARADA SYNDROME
     Route: 065

REACTIONS (3)
  - Cataract [Unknown]
  - Ocular hypertension [Unknown]
  - Cytomegalovirus chorioretinitis [Recovered/Resolved]
